FAERS Safety Report 8512586-6 (Version None)
Quarter: 2012Q3

REPORT INFORMATION
  Report Type: 
  Country: None (occurrence: None)
  Receive Date: 20120716
  Receipt Date: 20120706
  Transmission Date: 20120928
  Serious: Yes (Hospitalization, Other)
  Sender: FDA-Public Use
  Company Number: JP-PFIZER INC-2012168010

PATIENT
  Sex: Female

DRUGS (7)
  1. HYDRALAZINE [Concomitant]
     Route: 064
  2. HEPARIN [Concomitant]
     Route: 064
  3. AMLODIPINE [Suspect]
     Dosage: UNK
     Route: 063
  4. AMLODIPINE [Suspect]
     Dosage: UNK
     Route: 064
  5. PREDNISOLONE [Concomitant]
     Route: 064
  6. BETAMETHASONE [Concomitant]
     Route: 064
  7. ALBUMIN (HUMAN) [Concomitant]
     Route: 064

REACTIONS (4)
  - PREMATURE BABY [None]
  - NEONATAL RESPIRATORY DISTRESS SYNDROME [None]
  - MATERNAL EXPOSURE TIMING UNSPECIFIED [None]
  - LOW BIRTH WEIGHT BABY [None]
